FAERS Safety Report 9736623 (Version 1)
Quarter: 2013Q4

REPORT INFORMATION
  Report Type: Spontaneous
  Country: IT (occurrence: IT)
  Receive Date: 20131206
  Receipt Date: 20131206
  Transmission Date: 20140711
  Serious: Yes (Hospitalization)
  Sender: FDA-Public Use
  Company Number: IT-NOVOPROD-394170

PATIENT
  Age: 17 Year
  Sex: Male

DRUGS (2)
  1. NORDITROPIN SIMPLEXX [Suspect]
     Indication: GROWTH HORMONE DEFICIENCY
     Dosage: 0.2 MG/KG, QW (TEMPORARILY STOPPED)
     Route: 058
     Dates: start: 200802, end: 200901
  2. NORDITROPIN SIMPLEXX [Suspect]
     Dosage: UNK (DEFINITIVELY STOPPED)
     Route: 058

REACTIONS (1)
  - Peutz-Jeghers syndrome [Recovering/Resolving]
